FAERS Safety Report 9127202 (Version 2)
Quarter: 2013Q2

REPORT INFORMATION
  Report Type: Spontaneous
  Country: US (occurrence: US)
  Receive Date: 20130228
  Receipt Date: 20130408
  Transmission Date: 20140414
  Serious: Yes (Other)
  Sender: FDA-Public Use
  Company Number: US-AMGEN-USASP2013012009

PATIENT
  Sex: Female
  Weight: 65.76 kg

DRUGS (5)
  1. PROLIA [Suspect]
     Indication: OSTEOPOROSIS
     Dosage: 60 MG, Q6MO
     Route: 058
     Dates: start: 20111227
  2. PROLIA [Suspect]
     Dosage: 60 MG, Q6MO
     Route: 058
     Dates: start: 20120628
  3. PROLIA [Suspect]
     Dosage: 60 MG, Q6MO
     Route: 058
     Dates: start: 20130124
  4. CALCIUM [Concomitant]
     Dosage: 1000 MG, UNK
  5. VITAMIN D /00107901/ [Concomitant]
     Dosage: 400 IU, UNK

REACTIONS (3)
  - Bladder prolapse [Unknown]
  - Cystitis [Unknown]
  - Arthralgia [Unknown]
